FAERS Safety Report 15430374 (Version 1)
Quarter: 2018Q3

REPORT INFORMATION
  Report Type: Report from Study
  Country: CZ (occurrence: CZ)
  Receive Date: 20180926
  Receipt Date: 20180926
  Transmission Date: 20181010
  Serious: Yes (Hospitalization)
  Sender: FDA-Public Use
  Company Number: CZ-PFIZER INC-2018387388

PATIENT
  Age: 73 Year
  Sex: Male
  Weight: 76 kg

DRUGS (6)
  1. APO?SIMVASTATIN [Concomitant]
     Active Substance: SIMVASTATIN
  2. SUNITINIB MALATE. [Suspect]
     Active Substance: SUNITINIB MALATE
     Indication: RENAL CELL CARCINOMA
     Dosage: 50 MG, CYCLIC (ONCE DAILY OF A SCHEDULE OF 4 WEEKS ON TREATMENT FOLLOWED BY 2 WEEKS OFF TREATMENT)
     Route: 048
     Dates: start: 20171206, end: 20180827
  3. LOKREN [Concomitant]
     Active Substance: BETAXOLOL HYDROCHLORIDE
  4. DUODART [Concomitant]
     Active Substance: DUTASTERIDE\TAMSULOSIN
  5. AGEN [Concomitant]
     Active Substance: AMLODIPINE BESYLATE
  6. PERINDOPRIL [Concomitant]
     Active Substance: PERINDOPRIL

REACTIONS (2)
  - General physical health deterioration [Not Recovered/Not Resolved]
  - Dehydration [Recovered/Resolved]

NARRATIVE: CASE EVENT DATE: 20180828
